FAERS Safety Report 16133964 (Version 2)
Quarter: 2019Q3

REPORT INFORMATION
  Report Type: Spontaneous
  Country: US (occurrence: US)
  Receive Date: 20190329
  Receipt Date: 20190930
  Transmission Date: 20191004
  Serious: No
  Sender: FDA-Public Use
  Company Number: US-MYLANLABS-2019M1024461

PATIENT
  Sex: Female

DRUGS (6)
  1. TAMOXIFEN [Suspect]
     Active Substance: TAMOXIFEN
     Indication: INTRADUCTAL PROLIFERATIVE BREAST LESION
     Dosage: 20 MILLIGRAM, QD
     Route: 048
  2. TAMOXIFEN [Suspect]
     Active Substance: TAMOXIFEN
     Indication: INTRADUCTAL PROLIFERATIVE BREAST LESION
     Dosage: UNK
     Dates: start: 201407
  3. MULTIVITAMIN                       /00097801/ [Concomitant]
     Active Substance: VITAMINS
     Dosage: UNK
  4. ASPIRIN 81 [Concomitant]
     Active Substance: ASPIRIN
     Dosage: UNK
  5. OSCAL [Concomitant]
     Active Substance: CALCIUM CARBONATE
     Dosage: UNK
  6. TAMOXIFEN [Suspect]
     Active Substance: TAMOXIFEN
     Dosage: 20 MILLIGRAM, QD
     Route: 048
     Dates: end: 2018

REACTIONS (1)
  - Alopecia [Not Recovered/Not Resolved]
